FAERS Safety Report 21367339 (Version 2)
Quarter: 2022Q4

REPORT INFORMATION
  Report Type: Spontaneous
  Country: US (occurrence: US)
  Receive Date: 20220923
  Receipt Date: 20221121
  Transmission Date: 20230113
  Serious: No
  Sender: FDA-Public Use
  Company Number: US-SA-SAC20220921000052

PATIENT
  Sex: Female

DRUGS (1)
  1. AUBAGIO [Suspect]
     Active Substance: TERIFLUNOMIDE
     Indication: Multiple sclerosis
     Dosage: 14 MG, QD
     Route: 048
     Dates: start: 20190810

REACTIONS (5)
  - Abdominal discomfort [Unknown]
  - Bladder disorder [Unknown]
  - Fall [Unknown]
  - Balance disorder [Unknown]
  - Diarrhoea [Unknown]
